FAERS Safety Report 10388791 (Version 1)
Quarter: 2014Q3

REPORT INFORMATION
  Report Type: Report from Study
  Country: BR (occurrence: BR)
  Receive Date: 20140816
  Receipt Date: 20140816
  Transmission Date: 20150326
  Serious: Yes (Disabling)
  Sender: FDA-Public Use
  Company Number: BR-ABBVIE-14K-020-1271052-00

PATIENT
  Age: 53 Year
  Sex: Female
  Weight: 115 kg

DRUGS (4)
  1. CHLOROQUINE/MELOXICAM/RANITIDINE/METHOTREXATE (MAGISTRAL FORMULA) [Concomitant]
     Indication: ARTHRITIS
     Route: 048
     Dates: start: 201405
  2. ENALAPRIL MALEATE. [Concomitant]
     Active Substance: ENALAPRIL MALEATE
     Indication: HYPERTENSION
     Route: 048
  3. HUMIRA [Suspect]
     Active Substance: ADALIMUMAB
     Indication: RHEUMATOID ARTHRITIS
     Route: 058
     Dates: start: 20080101
  4. PURAN [Concomitant]
     Active Substance: LEVOTHYROXINE SODIUM
     Indication: THYROID DISORDER
     Route: 048
     Dates: start: 2006

REACTIONS (12)
  - Emotional disorder [Unknown]
  - Allergic cough [Not Recovered/Not Resolved]
  - Nephrolithiasis [Not Recovered/Not Resolved]
  - Abasia [Recovered/Resolved]
  - Arthritis [Recovered/Resolved]
  - Pain [Not Recovered/Not Resolved]
  - Pain in extremity [Not Recovered/Not Resolved]
  - Gait disturbance [Not Recovered/Not Resolved]
  - Renal colic [Not Recovered/Not Resolved]
  - Limb discomfort [Not Recovered/Not Resolved]
  - Joint swelling [Not Recovered/Not Resolved]
  - Muscle rigidity [Not Recovered/Not Resolved]

NARRATIVE: CASE EVENT DATE: 20140203
